FAERS Safety Report 7470937-8 (Version None)
Quarter: 2011Q2

REPORT INFORMATION
  Report Type: 
  Country: None (occurrence: None)
  Receive Date: 20110510
  Receipt Date: 20110502
  Transmission Date: 20111010
  Serious: No
  Sender: FDA-Public Use
  Company Number: US-PFIZER INC-2011095108

PATIENT
  Sex: Female

DRUGS (2)
  1. AZITHROMYCIN [Suspect]
     Indication: RHINITIS
     Dosage: 500 MG, 1X/DAY
  2. AZITHROMYCIN [Suspect]
     Indication: ASTHMA

REACTIONS (1)
  - DRUG INEFFECTIVE [None]
